FAERS Safety Report 9314032 (Version 1)
Quarter: 2013Q2

REPORT INFORMATION
  Report Type: Spontaneous
  Country: US (occurrence: None)
  Receive Date: 20130524
  Receipt Date: 20130524
  Transmission Date: 20140414
  Serious: No
  Sender: FDA-Public Use
  Company Number: None

PATIENT
  Age: 70 Year
  Sex: Male
  Weight: 113 kg

DRUGS (2)
  1. TICAGRELOR [Suspect]
     Indication: CORONARY ARTERIAL STENT INSERTION
     Route: 048
     Dates: start: 20130514, end: 20130522
  2. TICAGRELOR [Suspect]
     Indication: ACUTE CORONARY SYNDROME
     Route: 048
     Dates: start: 20130514, end: 20130522

REACTIONS (3)
  - Rash pruritic [None]
  - Rash generalised [None]
  - Urticaria [None]
